FAERS Safety Report 5722669-1 (Version None)
Quarter: 2008Q2

REPORT INFORMATION
  Report Type: 
  Country: None (occurrence: None)
  Receive Date: 20080429
  Receipt Date: 20071203
  Transmission Date: 20081010
  Serious: No
  Sender: FDA-Public Use
  Company Number: US-ASTRAZENECA-2007UW27467

PATIENT
  Age: 75 Year
  Sex: Female
  Weight: 104.3 kg

DRUGS (6)
  1. NEXIUM [Suspect]
     Indication: THROAT IRRITATION
     Route: 048
  2. NEXIUM [Suspect]
     Indication: DYSPEPSIA
     Route: 048
  3. NEXIUM [Suspect]
     Indication: HYPERCHLORHYDRIA
     Route: 048
  4. COUMADIN [Concomitant]
  5. DIOVAN [Concomitant]
  6. TOPROL-XL [Concomitant]

REACTIONS (5)
  - ABDOMINAL PAIN UPPER [None]
  - ALOPECIA [None]
  - ILL-DEFINED DISORDER [None]
  - INTERNATIONAL NORMALISED RATIO DECREASED [None]
  - THROAT IRRITATION [None]
